FAERS Safety Report 8960355 (Version 1)
Quarter: 2012Q4

REPORT INFORMATION
  Report Type: 
  Country: US (occurrence: US)
  Receive Date: 20121212
  Receipt Date: 20121212
  Transmission Date: 20130627
  Serious: Yes (Hospitalization)
  Sender: FDA-Public Use
  Company Number: US-BAYER-2012-129680

PATIENT
  Age: 22 Year
  Sex: Female
  Weight: 83.9 kg

DRUGS (2)
  1. YAZ [Suspect]
     Dosage: UNK
     Dates: start: 20050117, end: 20080716
  2. OCELLA [Suspect]
     Dosage: UNK
     Dates: start: 20050617, end: 20080716

REACTIONS (3)
  - Gallbladder disorder [None]
  - Pain [None]
  - Gastric disorder [None]
